FAERS Safety Report 6427187-3 (Version None)
Quarter: 2009Q4

REPORT INFORMATION
  Report Type: 
  Country: None (occurrence: None)
  Receive Date: 20091104
  Receipt Date: 20091028
  Transmission Date: 20100525
  Serious: Yes (Disabling)
  Sender: FDA-Public Use
  Company Number: B0596040A

PATIENT
  Sex: Female
  Weight: 69 kg

DRUGS (2)
  1. ALLI [Suspect]
     Dosage: 3CAP PER DAY
     Route: 065
     Dates: start: 20090601, end: 20090615
  2. NORDETTE-21 [Concomitant]
     Indication: CONTRACEPTION
     Route: 065

REACTIONS (9)
  - ANXIETY [None]
  - FEELING ABNORMAL [None]
  - GASTRITIS [None]
  - INTENTIONAL DRUG MISUSE [None]
  - TACHYCARDIA [None]
  - TENSION HEADACHE [None]
  - TREMOR [None]
  - VERTIGO [None]
  - VOMITING [None]
